FAERS Safety Report 4788854-0 (Version None)
Quarter: 2005Q4

REPORT INFORMATION
  Report Type: 
  Country: None (occurrence: None)
  Receive Date: 20051004
  Receipt Date: 20050919
  Transmission Date: 20060501
  Serious: Yes (Other)
  Sender: FDA-Public Use
  Company Number: 505#1#2005-01620

PATIENT
  Age: 24 Year
  Sex: Female

DRUGS (1)
  1. CORODIL (ENALAPRIL) [Suspect]
     Indication: HYPERTENSION
     Dosage: P.O.
     Route: 048
     Dates: start: 20030423

REACTIONS (11)
  - ASTHENIA [None]
  - BALANCE DISORDER [None]
  - BLOOD PRESSURE DECREASED [None]
  - COGNITIVE DISORDER [None]
  - FATIGUE [None]
  - MOBILITY DECREASED [None]
  - MONOPARESIS [None]
  - NAUSEA [None]
  - VISUAL DISTURBANCE [None]
  - VISUAL FIELD DEFECT [None]
  - VOMITING [None]
